FAERS Safety Report 4522448-7 (Version None)
Quarter: 2004Q4

REPORT INFORMATION
  Report Type: 
  Country: None (occurrence: None)
  Receive Date: 20041207
  Receipt Date: 20041123
  Transmission Date: 20050328
  Serious: Yes (Death, Other)
  Sender: FDA-Public Use
  Company Number: US_0406103918

PATIENT
  Age: 61 Year
  Sex: Male
  Weight: 96 kg

DRUGS (5)
  1. PROZAC [Suspect]
     Indication: MAJOR DEPRESSION
     Dosage: 20 MG/1 DAY
     Dates: start: 20040105, end: 20040116
  2. LEXAPRO [Concomitant]
  3. NADOLOL [Concomitant]
  4. TRIAMTERENE AND HYDROCHLOROTHIAZIDE [Concomitant]
  5. ALLEGRA [Concomitant]

REACTIONS (2)
  - COMPLETED SUICIDE [None]
  - GUN SHOT WOUND [None]
